FAERS Safety Report 6366102-8 (Version None)
Quarter: 2009Q3

REPORT INFORMATION
  Report Type: 
  Country: None (occurrence: None)
  Receive Date: 20090920
  Receipt Date: 20090602
  Transmission Date: 20100115
  Serious: No
  Sender: FDA-Public Use
  Company Number: US-BAUSCH-2009BL002682

PATIENT
  Age: 39 Year
  Sex: Female
  Weight: 73 kg

DRUGS (2)
  1. ALAWAY [Suspect]
     Indication: EYE PRURITUS
     Route: 047
     Dates: start: 20090601
  2. SUDAFED 12 HOUR [Concomitant]
     Indication: SEASONAL ALLERGY
     Route: 048
     Dates: start: 20090601, end: 20090601

REACTIONS (1)
  - BLEPHAROSPASM [None]
